FAERS Safety Report 7747706-4 (Version None)
Quarter: 2011Q3

REPORT INFORMATION
  Report Type: 
  Country: None (occurrence: None)
  Receive Date: 20110913
  Receipt Date: 20110830
  Transmission Date: 20111222
  Serious: Yes (Hospitalization)
  Sender: FDA-Public Use
  Company Number: PHHO2011GB14124

PATIENT
  Sex: Male
  Weight: 82 kg

DRUGS (2)
  1. ALISKIREN [Suspect]
     Indication: CARDIAC FAILURE
     Dosage: 300 MG, BID
     Dates: start: 20101206
  2. BUMETANIDE [Suspect]

REACTIONS (1)
  - GOUT [None]
